FAERS Safety Report 9427697 (Version 1)
Quarter: 2013Q3

REPORT INFORMATION
  Report Type: Report from Study
  Country: US (occurrence: US)
  Receive Date: 20130730
  Receipt Date: 20130730
  Transmission Date: 20140515
  Serious: No
  Sender: FDA-Public Use
  Company Number: US-ABBOTT-12P-163-0968572-00

PATIENT
  Sex: Male
  Weight: 127.12 kg

DRUGS (6)
  1. NIASPAN (COATED) 500MG [Suspect]
     Indication: LOW DENSITY LIPOPROTEIN INCREASED
     Dosage: 1 IN 1 DAY, AT BEDTIME
     Dates: start: 200708
  2. ALTACE [Concomitant]
     Indication: PRODUCT USED FOR UNKNOWN INDICATION
  3. COREG [Concomitant]
     Indication: PRODUCT USED FOR UNKNOWN INDICATION
  4. NORVASC [Concomitant]
     Indication: PRODUCT USED FOR UNKNOWN INDICATION
  5. ASA [Concomitant]
     Indication: PRODUCT USED FOR UNKNOWN INDICATION
  6. CRESTOR [Concomitant]
     Indication: PRODUCT USED FOR UNKNOWN INDICATION

REACTIONS (3)
  - Pain in extremity [Recovered/Resolved]
  - Flushing [Unknown]
  - Feeling hot [Unknown]
